FAERS Safety Report 11310237 (Version 1)
Quarter: 2015Q3

REPORT INFORMATION
  Report Type: Spontaneous
  Country: US (occurrence: US)
  Receive Date: 20150724
  Receipt Date: 20150724
  Transmission Date: 20151125
  Serious: No
  Sender: FDA-Public Use
  Company Number: US-009507513-1507USA003031

PATIENT
  Age: 26 Year
  Sex: Female
  Weight: 54.42 kg

DRUGS (6)
  1. NEXPLANON [Suspect]
     Active Substance: ETONOGESTREL
     Dosage: 1 ROD / 3 YEARS LATERAL AND CLOSER TO THE SHOULDER FURTHER UP TO AXILLARY AREA OF LEFT ARM
     Route: 059
     Dates: start: 20150702
  2. NEXPLANON [Suspect]
     Active Substance: ETONOGESTREL
     Dosage: ONE ROD. LEFT ARM
     Route: 059
     Dates: start: 20120710, end: 20150702
  3. LAMICTAL [Concomitant]
     Active Substance: LAMOTRIGINE
  4. SYNTHROID [Suspect]
     Active Substance: LEVOTHYROXINE SODIUM
  5. FOLIC ACID. [Concomitant]
     Active Substance: FOLIC ACID
  6. NEXPLANON [Suspect]
     Active Substance: ETONOGESTREL
     Indication: CONTRACEPTION
     Dosage: ONE ROD, 1/2 INCH CENTIMETER OF  LEFT ARM, MEDIAL ASPECT OF THE ARM CLOSER TO THE ELBOW
     Route: 059
     Dates: start: 20150702, end: 20150702

REACTIONS (3)
  - Device deployment issue [Unknown]
  - Device difficult to use [Recovered/Resolved]
  - Product quality issue [Unknown]

NARRATIVE: CASE EVENT DATE: 20150702
